FAERS Safety Report 8839441 (Version 1)
Quarter: 2012Q4

REPORT INFORMATION
  Report Type: Spontaneous
  Country: US (occurrence: None)
  Receive Date: 20121012
  Receipt Date: 20121012
  Transmission Date: 20130627
  Serious: No
  Sender: FDA-Public Use
  Company Number: None

PATIENT
  Age: 72 Year
  Sex: Male
  Weight: 88 kg

DRUGS (1)
  1. MIDODRINE [Suspect]
     Indication: ORTHOSTATIC HYPOTENSION
     Dosage: 1 tablet 3 times a day po
     Route: 048
     Dates: start: 20120809, end: 20120923

REACTIONS (3)
  - Visual impairment [None]
  - Diplopia [None]
  - Prostatic disorder [None]
